FAERS Safety Report 7269965-7 (Version None)
Quarter: 2011Q1

REPORT INFORMATION
  Report Type: 
  Country: None (occurrence: None)
  Receive Date: 20110202
  Receipt Date: 20110120
  Transmission Date: 20110831
  Serious: Yes (Death, Hospitalization, Other)
  Sender: FDA-Public Use
  Company Number: US-ACTELION-A-NJ2011-43357

PATIENT

DRUGS (16)
  1. FORTICAL [Concomitant]
  2. LISINOPRIL [Concomitant]
  3. NORTRIPTYLINE [Concomitant]
  4. LOVENOX [Concomitant]
  5. SIMVASTATIN [Concomitant]
  6. TRACLEER [Suspect]
     Indication: PULMONARY ARTERIAL HYPERTENSION
     Dosage: 62.5 MG, BID
     Route: 048
     Dates: start: 20061206, end: 20101229
  7. FENOFIBRATE [Concomitant]
  8. FEBUXOSTAT [Concomitant]
  9. EFFEXOR XR [Concomitant]
  10. DIGOXIN [Concomitant]
  11. LASIX [Concomitant]
  12. OMEPRAZOLE [Concomitant]
  13. COUMADIN [Concomitant]
  14. ALBUTEROL [Concomitant]
  15. ATROVENT [Concomitant]
  16. PREDNISONE [Concomitant]

REACTIONS (7)
  - BACK PAIN [None]
  - MECHANICAL VENTILATION [None]
  - DEATH [None]
  - BLADDER CANCER [None]
  - HAEMORRHAGIC DIATHESIS [None]
  - RESPIRATORY FAILURE [None]
  - PNEUMONIA [None]
